FAERS Safety Report 7778505-5 (Version None)
Quarter: 2011Q3

REPORT INFORMATION
  Report Type: 
  Country: None (occurrence: None)
  Receive Date: 20110926
  Receipt Date: 20110921
  Transmission Date: 20111222
  Serious: Yes (Other)
  Sender: FDA-Public Use
  Company Number: US-BRISTOL-MYERS SQUIBB COMPANY-16081861

PATIENT
  Age: 26 Year
  Sex: Male
  Weight: 83 kg

DRUGS (2)
  1. KENALOG [Suspect]
     Indication: INTERVERTEBRAL DISC PROTRUSION
     Dates: start: 20110803
  2. LEXAPRO [Concomitant]
     Route: 048

REACTIONS (3)
  - PSYCHOTIC DISORDER [None]
  - DIARRHOEA [None]
  - WEIGHT DECREASED [None]
